FAERS Safety Report 15705057 (Version 2)
Quarter: 2018Q4

REPORT INFORMATION
  Report Type: Spontaneous
  Country: US (occurrence: US)
  Receive Date: 20181210
  Receipt Date: 20181227
  Transmission Date: 20190205
  Serious: Yes (Other)
  Sender: FDA-Public Use
  Company Number: US-SA-2018SA334754

PATIENT
  Age: 55 Year
  Sex: Female
  Weight: 84 kg

DRUGS (2)
  1. TAXOTERE [Suspect]
     Active Substance: DOCETAXEL
     Indication: BREAST CANCER FEMALE
     Dosage: 4
     Route: 042
     Dates: start: 20070410, end: 20070410
  2. TAXOTERE [Suspect]
     Active Substance: DOCETAXEL
     Dosage: 4 UNK, Q3W
     Route: 042
     Dates: start: 20070416, end: 20070416

REACTIONS (1)
  - Alopecia [Recovering/Resolving]
